FAERS Safety Report 15670378 (Version 1)
Quarter: 2018Q4

REPORT INFORMATION
  Report Type: Spontaneous
  Country: US (occurrence: US)
  Receive Date: 20181129
  Receipt Date: 20181129
  Transmission Date: 20190205
  Serious: No
  Sender: FDA-Public Use
  Company Number: US-009507513-1811USA007217

PATIENT
  Age: 48 Year
  Sex: Female

DRUGS (2)
  1. KEYTRUDA [Suspect]
     Active Substance: PEMBROLIZUMAB
     Indication: IMMUNE ENHANCEMENT THERAPY
     Dosage: 2 MILLIGRAM/KILOGRAM, UNK (TOTAL 2 DOSES)
     Dates: start: 2015
  2. EMTRICITABINE (+) RILPIVIRINE HYDROCHLORIDE (+) TENOFOVIR ALAFENAMIDE [Concomitant]
     Indication: HIV INFECTION
     Dosage: UNK
     Dates: start: 2015

REACTIONS (1)
  - Off label use [Unknown]

NARRATIVE: CASE EVENT DATE: 2015
